FAERS Safety Report 6617998-3 (Version None)
Quarter: 2010Q1

REPORT INFORMATION
  Report Type: 
  Country: None (occurrence: None)
  Receive Date: 20100302
  Receipt Date: 20100216
  Transmission Date: 20100710
  Serious: Yes (Other)
  Sender: FDA-Public Use
  Company Number: DSA_42627_2010

PATIENT
  Sex: Female

DRUGS (1)
  1. WELLBUTRIN XL [Suspect]
     Indication: DEPRESSION
     Dosage: (150 MG QD ORAL), (300 MG QD ORAL)
     Route: 048
     Dates: start: 20100109, end: 20100129

REACTIONS (8)
  - ASTHENIA [None]
  - CHILLS [None]
  - DRUG WITHDRAWAL SYNDROME [None]
  - FATIGUE [None]
  - MEDICATION RESIDUE [None]
  - PRODUCT QUALITY ISSUE [None]
  - TREMOR [None]
  - WITHDRAWAL SYNDROME [None]
